FAERS Safety Report 8426347-X (Version None)
Quarter: 2012Q2

REPORT INFORMATION
  Report Type: 
  Country: None (occurrence: None)
  Receive Date: 20120323
  Receipt Date: 20111117
  Transmission Date: 20120825
  Serious: Yes (Other)
  Sender: FDA-Public Use
  Company Number: 163-21880-11043289

PATIENT
  Age: 38 Year
  Sex: Male

DRUGS (14)
  1. ZOFRAN [Concomitant]
  2. DEXAMETHASONE [Concomitant]
  3. ZOLOFT [Concomitant]
  4. FLEXERIL [Concomitant]
  5. XANAX [Concomitant]
  6. MORPHINE [Concomitant]
  7. COUMADIN [Concomitant]
  8. POTASSIUM CHLORIDE [Concomitant]
  9. TRAZODONE HCL [Concomitant]
  10. REVLIMID [Suspect]
     Indication: MULTIPLE MYELOMA
     Dosage: 25 MG, DAILY X 21 DAYS, PO ; 10 MG, DAILY X 28, PO
     Route: 048
     Dates: start: 20110407
  11. REVLIMID [Suspect]
     Indication: MULTIPLE MYELOMA
     Dosage: 25 MG, DAILY X 21 DAYS, PO ; 10 MG, DAILY X 28, PO
     Route: 048
     Dates: start: 20110222, end: 20110331
  12. LUNESTA [Concomitant]
  13. NEXIUM [Concomitant]
  14. LORTAB [Concomitant]

REACTIONS (6)
  - NEUTROPENIA [None]
  - WHITE BLOOD CELL COUNT DECREASED [None]
  - NAUSEA [None]
  - PANCYTOPENIA [None]
  - OEDEMA PERIPHERAL [None]
  - ASTHENIA [None]
